FAERS Safety Report 7454995-2 (Version None)
Quarter: 2011Q2

REPORT INFORMATION
  Report Type: 
  Country: None (occurrence: None)
  Receive Date: 20110503
  Receipt Date: 20110426
  Transmission Date: 20111010
  Serious: Yes (Death, Hospitalization)
  Sender: FDA-Public Use
  Company Number: BE-SANOFI-AVENTIS-2011SA025865

PATIENT
  Age: 53 Year
  Sex: Female

DRUGS (10)
  1. OXALIPLATIN [Suspect]
     Route: 041
  2. BEVACIZUMAB [Suspect]
     Route: 041
  3. FLURACEDYL [Suspect]
     Route: 041
  4. ELVORINE [Suspect]
     Route: 041
  5. NAPROXEN SODIUM [Concomitant]
  6. MYOLASTAN [Concomitant]
     Dates: start: 20100608, end: 20100610
  7. OXALIPLATIN [Suspect]
     Route: 041
     Dates: start: 20100601, end: 20100601
  8. ELVORINE [Suspect]
     Route: 041
     Dates: start: 20100601, end: 20100601
  9. BEVACIZUMAB [Suspect]
     Route: 041
     Dates: start: 20100601, end: 20100601
  10. FLURACEDYL [Suspect]
     Route: 041
     Dates: start: 20100601, end: 20100602

REACTIONS (11)
  - URINARY TRACT INFECTION BACTERIAL [None]
  - PYREXIA [None]
  - SKIN INFECTION [None]
  - ARTHRALGIA [None]
  - VOMITING [None]
  - PELVIC ABSCESS [None]
  - DIARRHOEA [None]
  - DISEASE PROGRESSION [None]
  - MUCOSAL INFLAMMATION [None]
  - OROPHARYNGEAL PAIN [None]
  - NAUSEA [None]
